FAERS Safety Report 22029540 (Version 4)
Quarter: 2025Q4

REPORT INFORMATION
  Report Type: Spontaneous
  Country: US (occurrence: US)
  Receive Date: 20230223
  Receipt Date: 20251126
  Transmission Date: 20260117
  Serious: No
  Sender: PFIZER
  Company Number: US-PFIZER INC-202300077900

PATIENT
  Age: 69 Year
  Sex: Female
  Weight: 80.2 kg

DRUGS (3)
  1. IBRANCE [Suspect]
     Active Substance: PALBOCICLIB
     Indication: Breast cancer stage IV
     Dosage: 125 MG, CYCLIC (125MG ONCE DAILY FOR 3 WEEKS ON, THEN 1 WEEK OFF)
     Dates: start: 202112
  2. IBRANCE [Suspect]
     Active Substance: PALBOCICLIB
     Dosage: 100 MG, (TOOK 3 TABLET IN A WEEK TO WEEK 4)
     Dates: start: 2023
  3. ANASTROZOLE [Suspect]
     Active Substance: ANASTROZOLE
     Indication: Breast cancer stage IV
     Dosage: UNK, 1X/DAY (1 TABLET BY MOUTH EVERY DAY)
     Route: 048
     Dates: start: 202112

REACTIONS (6)
  - Feeling abnormal [Unknown]
  - Taste disorder [Unknown]
  - Emotional disorder [Unknown]
  - Food aversion [Unknown]
  - Dizziness [Unknown]
  - Intentional product misuse [Unknown]
